FAERS Safety Report 25378527 (Version 2)
Quarter: 2025Q2

REPORT INFORMATION
  Report Type: Spontaneous
  Country: MX (occurrence: MX)
  Receive Date: 20250530
  Receipt Date: 20250612
  Transmission Date: 20250717
  Serious: Yes (Life-Threatening, Hospitalization, Other)
  Sender: MSN LABORATORIES PRIVATE LIMITED
  Company Number: MX-MSNLABS-2025MSNLIT01297

PATIENT

DRUGS (4)
  1. ATORVASTATIN [Suspect]
     Active Substance: ATORVASTATIN
     Indication: Acute myocardial infarction
     Dosage: (80 MG) EVERY 24 HOURS
     Route: 065
  2. CLOPIDOGREL [Concomitant]
     Active Substance: CLOPIDOGREL BISULFATE
     Indication: Acute myocardial infarction
     Dosage: 75 MG EVERY 24 HOURS
     Route: 065
  3. METOPROLOL [Concomitant]
     Active Substance: METOPROLOL
     Indication: Acute myocardial infarction
     Dosage: 200 MG EVERY 24 HOURS
     Route: 065
  4. EMPAGLIFLOZIN [Concomitant]
     Active Substance: EMPAGLIFLOZIN
     Dosage: 12.5 MG EVERY 24 HOURS
     Route: 065

REACTIONS (5)
  - Autoimmune hepatitis [Recovered/Resolved]
  - Hyperkalaemia [Recovered/Resolved]
  - Rhabdomyolysis [Recovered/Resolved]
  - Drug-induced liver injury [Recovered/Resolved]
  - Acute kidney injury [Recovered/Resolved]
